FAERS Safety Report 9606360 (Version 2)
Quarter: 2013Q4

REPORT INFORMATION
  Report Type: Spontaneous
  Country: US (occurrence: US)
  Receive Date: 20131008
  Receipt Date: 20131008
  Transmission Date: 20140711
  Serious: No
  Sender: FDA-Public Use
  Company Number: US-AMGEN-USASP2013046504

PATIENT
  Age: 63 Year
  Sex: Female
  Weight: 68.03 kg

DRUGS (10)
  1. PROLIA [Suspect]
     Indication: OSTEOPOROSIS POSTMENOPAUSAL
     Dosage: UNK
     Dates: start: 20120217
  2. PROLIA [Suspect]
     Dosage: UNK
     Dates: start: 20130301
  3. ASA [Concomitant]
  4. EFFEXOR XR [Concomitant]
  5. ELAVIL                             /00002202/ [Concomitant]
  6. INDERAL [Concomitant]
  7. SYNTHROID [Concomitant]
  8. IMITREX                            /01044801/ [Concomitant]
  9. TOPAMAX [Concomitant]
  10. VITAMIN D3 [Concomitant]

REACTIONS (1)
  - Periarthritis [Unknown]
